FAERS Safety Report 7091004-1 (Version None)
Quarter: 2010Q4

REPORT INFORMATION
  Report Type: 
  Country: None (occurrence: None)
  Receive Date: 20101105
  Receipt Date: 20101105
  Transmission Date: 20110411
  Serious: Yes (Hospitalization, Other)
  Sender: FDA-Public Use
  Company Number: None

PATIENT
  Age: 42 Year
  Sex: Male
  Weight: 58 kg

DRUGS (8)
  1. SEPTRA DS [Suspect]
     Indication: POST PROCEDURAL INFECTION
     Dosage: 1 TABLET BID PO
     Route: 048
     Dates: start: 20101027, end: 20101027
  2. ALBUTEROL INHALER [Concomitant]
  3. PHENERGAN [Concomitant]
  4. PERCOCET [Concomitant]
  5. NEURONTIN [Concomitant]
  6. CYMBALTA [Concomitant]
  7. ZANAFLEX [Concomitant]
  8. FENTANYL [Concomitant]

REACTIONS (1)
  - STEVENS-JOHNSON SYNDROME [None]
